FAERS Safety Report 5357254-7 (Version None)
Quarter: 2007Q2

REPORT INFORMATION
  Report Type: 
  Country: None (occurrence: None)
  Receive Date: 20070612
  Receipt Date: 20070601
  Transmission Date: 20071010
  Serious: Yes (Hospitalization)
  Sender: FDA-Public Use
  Company Number: GXKR2007IT04777

PATIENT
  Age: 54 Year
  Sex: Female

DRUGS (12)
  1. CLARITHROMYCIN [Suspect]
     Indication: HAEMOPHILUS INFECTION
     Dosage: 250 MG, BID, UNKNOWN
     Dates: start: 20060701
  2. SIROLIMUS [Suspect]
     Dosage: SEE IMAGE
     Dates: start: 20050501
  3. PREDNISONE TAB [Concomitant]
  4. OMEPRAZOLE [Concomitant]
  5. GLYCERYL TRINITRATE                             (GLYCERYL TRINITRATE) [Concomitant]
  6. CEFTAZIDIME [Concomitant]
  7. ALLOPURINOL [Concomitant]
  8. ASPIRIN [Concomitant]
  9. DARBEPOETIN ALFA  (DARBEPOETIN ALFA) [Concomitant]
  10. CARVEDILOL [Concomitant]
  11. CALCITRIOL [Concomitant]
  12. SODIUM BICARBONATE IN PLASTIC CONTAINER [Concomitant]

REACTIONS (5)
  - DRUG INTERACTION INHIBITION [None]
  - DRUG LEVEL INCREASED [None]
  - HAEMOPHILUS INFECTION [None]
  - NEPHROPATHY TOXIC [None]
  - RENAL IMPAIRMENT [None]
